FAERS Safety Report 10762542 (Version 1)
Quarter: 2015Q1

REPORT INFORMATION
  Report Type: Spontaneous
  Country: US (occurrence: None)
  Receive Date: 20150129
  Receipt Date: 20150129
  Transmission Date: 20150721
  Serious: Yes (Other)
  Sender: FDA-Public Use
  Company Number: 113922

PATIENT
  Sex: Female

DRUGS (5)
  1. KEPPRA XR [Suspect]
     Active Substance: LEVETIRACETAM
     Indication: SEIZURE
  2. JAKAFI [Suspect]
     Active Substance: RUXOLITINIB
     Route: 048
     Dates: start: 20120223
  3. CHILD IBUPROFEN SUSPENSION (IBUPROFEN) [Concomitant]
  4. XANAX [Concomitant]
     Active Substance: ALPRAZOLAM
  5. CHILDRENS TYLENOL MELTAWAY (PARACETAMOL) [Concomitant]

REACTIONS (3)
  - Hypoaesthesia [None]
  - Suicidal ideation [None]
  - Dizziness [None]
